FAERS Safety Report 5580183-0 (Version None)
Quarter: 2008Q1

REPORT INFORMATION
  Report Type: 
  Country: None (occurrence: None)
  Receive Date: 20080103
  Receipt Date: 20071228
  Transmission Date: 20080703
  Serious: Yes (Hospitalization)
  Sender: FDA-Public Use
  Company Number: GB-ROCHE-522034

PATIENT
  Age: 57 Year
  Sex: Female
  Weight: 121 kg

DRUGS (5)
  1. ORLISTAT [Suspect]
     Route: 048
     Dates: start: 20070223, end: 20070928
  2. BENDROFLUMETHIAZIDE [Concomitant]
     Indication: HYPERTENSION
     Dosage: THERAPY: '2.5 MG TO BE TAKEN ON ONLY ONE OCCASSION IN A 24 HOUR PERIOD'.
     Route: 048
     Dates: start: 20000801
  3. ATENOLOL [Concomitant]
     Indication: HYPERTENSION
     Dosage: THERAPY: '25 MG TO BE TAKEN ON ONLY ONE OCCASSION IN A 24 HOUR PERIOD'.
     Route: 048
     Dates: start: 20010110
  4. MELOXICAM [Concomitant]
     Dosage: THERAPY: 15 MG TO BE TAKEN ON ONLY ONE OCCASSION IN A 24 HOUR PERIOD'.
     Route: 048
     Dates: start: 20010801
  5. REDUCTIL [Concomitant]
     Route: 048
     Dates: start: 20070223

REACTIONS (1)
  - NEPHROLITHIASIS [None]
